FAERS Safety Report 14895473 (Version 1)
Quarter: 2018Q2

REPORT INFORMATION
  Report Type: Spontaneous
  Country: US (occurrence: US)
  Receive Date: 20180515
  Receipt Date: 20180515
  Transmission Date: 20180711
  Serious: Yes (Hospitalization, Other)
  Sender: FDA-Public Use
  Company Number: US-ELI_LILLY_AND_COMPANY-US201805004847

PATIENT
  Sex: Female

DRUGS (15)
  1. VYVANSE [Suspect]
     Active Substance: LISDEXAMFETAMINE DIMESYLATE
     Indication: DISTURBANCE IN ATTENTION
     Dosage: 30 MG, DAILY
     Route: 048
     Dates: start: 201312, end: 201401
  2. VYVANSE [Suspect]
     Active Substance: LISDEXAMFETAMINE DIMESYLATE
     Dosage: 20 MG, DAILY
     Route: 048
     Dates: start: 201512, end: 201605
  3. MULTIGEN                           /08242901/ [Concomitant]
     Indication: SERUM FERRITIN DECREASED
     Dosage: 15 MG, DAILY
     Route: 048
  4. VYVANSE [Suspect]
     Active Substance: LISDEXAMFETAMINE DIMESYLATE
     Dosage: 50 MG, DAILY
     Route: 048
     Dates: start: 201405, end: 201410
  5. MULTIVIT                           /07504101/ [Concomitant]
     Active Substance: VITAMINS
     Indication: SUPPLEMENTATION THERAPY
     Dosage: UNK UNK, DAILY
     Route: 048
     Dates: start: 1996
  6. PROZAC [Suspect]
     Active Substance: FLUOXETINE HYDROCHLORIDE
     Indication: ANXIETY
     Dosage: 20 MG, DAILY
     Route: 048
     Dates: start: 201406
  7. VYVANSE [Suspect]
     Active Substance: LISDEXAMFETAMINE DIMESYLATE
     Dosage: 30 MG, DAILY
     Route: 048
     Dates: start: 201503, end: 201503
  8. VYVANSE [Suspect]
     Active Substance: LISDEXAMFETAMINE DIMESYLATE
     Dosage: 30 MG, DAILY
     Route: 048
     Dates: start: 201504, end: 201512
  9. FERRITIN [Concomitant]
     Active Substance: FERRITIN
     Indication: ALOPECIA
     Dosage: UNK UNK, DAILY
     Route: 048
     Dates: start: 2012
  10. RETIN-A [Concomitant]
     Active Substance: TRETINOIN
     Indication: ROSACEA
     Route: 061
  11. VYVANSE [Suspect]
     Active Substance: LISDEXAMFETAMINE DIMESYLATE
     Indication: ASTHENIA
     Dosage: 40 MG, DAILY
     Route: 048
     Dates: start: 201401, end: 201405
  12. FERRITIN [Concomitant]
     Active Substance: FERRITIN
     Indication: ALOPECIA
  13. VYVANSE [Suspect]
     Active Substance: LISDEXAMFETAMINE DIMESYLATE
     Dosage: 40 MG, DAILY
     Route: 048
     Dates: start: 201503, end: 201504
  14. AZELAIC ACID. [Concomitant]
     Active Substance: AZELAIC ACID
     Indication: ROSACEA
     Route: 061
  15. AZELAIC ACID. [Concomitant]
     Active Substance: AZELAIC ACID
     Indication: ROSACEA

REACTIONS (9)
  - Weight increased [Not Recovered/Not Resolved]
  - Menstrual disorder [Unknown]
  - Anxiety [Not Recovered/Not Resolved]
  - Tachyphrenia [Recovered/Resolved]
  - Incisional hernia [Recovered/Resolved]
  - Glucose tolerance impaired [Not Recovered/Not Resolved]
  - Disturbance in attention [Not Recovered/Not Resolved]
  - Blood pressure increased [Not Recovered/Not Resolved]
  - Mitral valve prolapse [Recovered/Resolved]

NARRATIVE: CASE EVENT DATE: 201401
